FAERS Safety Report 9123549 (Version 1)
Quarter: 2013Q1

REPORT INFORMATION
  Report Type: Spontaneous
  Country: BR (occurrence: BR)
  Receive Date: 20130227
  Receipt Date: 20130227
  Transmission Date: 20140127
  Serious: Yes (Other)
  Sender: FDA-Public Use
  Company Number: PHHY2012BR082280

PATIENT
  Sex: Female

DRUGS (5)
  1. RITALINA [Suspect]
     Indication: ATTENTION DEFICIT/HYPERACTIVITY DISORDER
     Dosage: 0.5 DF, UNK
     Route: 048
  2. TEGRETOL [Suspect]
     Indication: PETIT MAL EPILEPSY
     Dosage: 9 ML, TID
     Route: 048
  3. TEGRETOL [Suspect]
     Dosage: 7 ML IN THE MORNING
     Route: 048
  4. TEGRETOL [Suspect]
     Indication: PETIT MAL EPILEPSY
     Dosage: 2 DF, DAILY ( TABLET IN THE EVENING AND 1 TABLET AT NIGHT)
     Route: 048
  5. URBANYL [Concomitant]

REACTIONS (1)
  - Disturbance in attention [Not Recovered/Not Resolved]
